FAERS Safety Report 21905167 (Version 1)
Quarter: 2023Q1

REPORT INFORMATION
  Report Type: Report from Study
  Country: CA (occurrence: CA)
  Receive Date: 20230124
  Receipt Date: 20230124
  Transmission Date: 20230418
  Serious: Yes (Death, Hospitalization)
  Sender: FDA-Public Use
  Company Number: CA-BAYER-2023A008597

PATIENT
  Age: 53 Year
  Sex: Female

DRUGS (10)
  1. ADEMPAS [Suspect]
     Active Substance: RIOCIGUAT
     Indication: Pulmonary hypertension
     Dosage: 2 MG, TID
     Dates: start: 20200718, end: 20221030
  2. GLICLAZIDE [Concomitant]
     Active Substance: GLICLAZIDE
  3. NADOLOL [Concomitant]
     Active Substance: NADOLOL
  4. NORTRIPTYLINE [Concomitant]
     Active Substance: NORTRIPTYLINE
  5. FUROSEMIDE [Concomitant]
     Active Substance: FUROSEMIDE
  6. SPIRONOLACTONE [Concomitant]
     Active Substance: SPIRONOLACTONE
  7. RIFAXIMIN [Concomitant]
     Active Substance: RIFAXIMIN
  8. TYLENOL [Concomitant]
     Active Substance: ACETAMINOPHEN
  9. OZEMPIC [Concomitant]
     Active Substance: SEMAGLUTIDE
  10. LANTUS [Concomitant]
     Active Substance: INSULIN GLARGINE

REACTIONS (1)
  - Death [Fatal]

NARRATIVE: CASE EVENT DATE: 20221030
